FAERS Safety Report 4775673-4 (Version None)
Quarter: 2005Q3

REPORT INFORMATION
  Report Type: 
  Country: None (occurrence: None)
  Receive Date: 20050920
  Receipt Date: 20050920
  Transmission Date: 20060218
  Serious: Yes (Disabling)
  Sender: FDA-Public Use
  Company Number: None

PATIENT
  Age: 54 Year
  Sex: Male
  Weight: 65.318 kg

DRUGS (4)
  1. THALIDOMIDE 100MG CELGENE [Suspect]
     Indication: MULTIPLE MYELOMA
     Dosage: 300MG DAILY PO
     Route: 048
     Dates: start: 20050311, end: 20050418
  2. DECADRON [Concomitant]
  3. WARFARIN SODIUM [Concomitant]
  4. ZOMETA [Concomitant]

REACTIONS (4)
  - ASTHENIA [None]
  - GAIT DISTURBANCE [None]
  - PERONEAL NERVE PALSY [None]
  - SWELLING [None]
